FAERS Safety Report 7424334-1 (Version None)
Quarter: 2011Q2

REPORT INFORMATION
  Report Type: 
  Country: None (occurrence: None)
  Receive Date: 20110419
  Receipt Date: 20081020
  Transmission Date: 20111010
  Serious: Yes (Other)
  Sender: FDA-Public Use
  Company Number: DE-GENENTECH-316839

PATIENT
  Age: 77 Year
  Sex: Female

DRUGS (3)
  1. LUCENTIS [Suspect]
     Indication: MACULAR DEGENERATION
     Route: 031
  2. AVASTIN [Suspect]
     Indication: PRODUCT USED FOR UNKNOWN INDICATION
  3. CORTISONE [Concomitant]
     Indication: PRODUCT USED FOR UNKNOWN INDICATION

REACTIONS (12)
  - MACULAR DEGENERATION [None]
  - DIPLOPIA [None]
  - DRY EYE [None]
  - CONFUSIONAL STATE [None]
  - CORNEAL DISORDER [None]
  - FOOT FRACTURE [None]
  - VISUAL ACUITY REDUCED [None]
  - RETINAL DETACHMENT [None]
  - EYE PAIN [None]
  - RETINAL DEGENERATION [None]
  - BRONCHITIS [None]
  - MALAISE [None]
